FAERS Safety Report 5333056-2 (Version None)
Quarter: 2007Q1

REPORT INFORMATION
  Report Type: 
  Country: None (occurrence: None)
  Receive Date: 20070306
  Receipt Date: 20060313
  Transmission Date: 20070707
  Serious: Yes (Hospitalization)
  Sender: FDA-Public Use
  Company Number: A03200601363

PATIENT
  Age: 89 Year
  Sex: Female

DRUGS (4)
  1. PLAVIX [Suspect]
     Indication: MYOCARDIAL INFARCTION
     Dosage: 75 MG QD - ORAL
     Route: 048
     Dates: start: 20040501
  2. PLAVIX [Suspect]
     Indication: STENT PLACEMENT
     Dosage: 75 MG QD - ORAL
     Route: 048
     Dates: start: 20040501
  3. ASPIRIN [Suspect]
     Indication: MYOCARDIAL INFARCTION
     Dosage: 81 MG QD - ORAL
     Route: 048
     Dates: start: 20040501
  4. ASPIRIN [Suspect]
     Indication: STENT PLACEMENT
     Dosage: 81 MG QD - ORAL
     Route: 048
     Dates: start: 20040501

REACTIONS (3)
  - CHEST PAIN [None]
  - MALAISE [None]
  - NAUSEA [None]
